FAERS Safety Report 8909951 (Version 8)
Quarter: 2013Q1

REPORT INFORMATION
  Report Type: Spontaneous
  Country: US (occurrence: US)
  Receive Date: 20121115
  Receipt Date: 20130124
  Transmission Date: 20140127
  Serious: Yes (Hospitalization, Other)
  Sender: FDA-Public Use
  Company Number: US-PFIZER INC-2012284003

PATIENT
  Age: 58 Year
  Sex: Female
  Weight: 59 kg

DRUGS (4)
  1. EFFEXOR XR [Suspect]
     Indication: DEPRESSION
     Dosage: 150 MG, DAILY
     Dates: end: 201301
  2. EFFEXOR [Suspect]
     Dosage: UNK
  3. VENLAFAXINE HYDROCHLORIDE [Suspect]
     Indication: DEPRESSION
     Dosage: 150 MG, DAILY
     Dates: start: 201301, end: 20130114
  4. TOPROL XL [Concomitant]
     Indication: HYPERTENSION
     Dosage: 200 MG, DAILY

REACTIONS (11)
  - Limb crushing injury [Unknown]
  - Femur fracture [Unknown]
  - Fall [Unknown]
  - Lower limb fracture [Unknown]
  - Upper limb fracture [Unknown]
  - Contusion [Unknown]
  - Ankle fracture [Unknown]
  - Road traffic accident [Unknown]
  - Osteoporosis [Not Recovered/Not Resolved]
  - Drug ineffective [Recovered/Resolved]
  - Malaise [Unknown]
